FAERS Safety Report 14981677 (Version 1)
Quarter: 2018Q2

REPORT INFORMATION
  Report Type: Report from Study
  Country: None (occurrence: US)
  Receive Date: 20180607
  Receipt Date: 20180607
  Transmission Date: 20180711
  Serious: Yes (Hospitalization, Other)
  Sender: FDA-Public Use
  Company Number: US-ABBVIE-18K-163-2298131-00

PATIENT
  Sex: Female

DRUGS (1)
  1. HUMIRA [Suspect]
     Active Substance: ADALIMUMAB
     Indication: CROHN^S DISEASE
     Route: 058
     Dates: start: 2017

REACTIONS (8)
  - Anaemia [Recovering/Resolving]
  - Adverse event [Unknown]
  - Blood iron decreased [Recovering/Resolving]
  - Peripheral artery thrombosis [Recovering/Resolving]
  - Pelvic pain [Recovering/Resolving]
  - Therapeutic response unexpected [Recovering/Resolving]
  - Immunodeficiency [Not Recovered/Not Resolved]
  - Pain in extremity [Recovering/Resolving]

NARRATIVE: CASE EVENT DATE: 2017
